FAERS Safety Report 7158533-3 (Version None)
Quarter: 2010Q4

REPORT INFORMATION
  Report Type: 
  Country: None (occurrence: None)
  Receive Date: 20101214
  Receipt Date: 20100518
  Transmission Date: 20110411
  Serious: Yes (Other)
  Sender: FDA-Public Use
  Company Number: US-ASTRAZENECA-2010SE22706

PATIENT
  Age: 58 Year
  Sex: Female
  Weight: 88 kg

DRUGS (7)
  1. CRESTOR [Suspect]
     Indication: BLOOD CHOLESTEROL INCREASED
     Route: 048
     Dates: start: 20080101
  2. LIPITOR [Suspect]
     Indication: BLOOD CHOLESTEROL INCREASED
     Dates: start: 20000101
  3. CARVEDILOL [Concomitant]
     Indication: CARDIAC DISORDER
  4. ACETAMINOPHEN AND HYDROCODONE BITARTRATE [Concomitant]
     Indication: PAIN
     Dosage: 10/500 FOUR TIMES A DAY
  5. XANAX [Concomitant]
     Indication: ANXIETY
  6. TRAZODONE [Concomitant]
     Indication: DEPRESSION
  7. LYRICA [Concomitant]
     Indication: FIBROMYALGIA

REACTIONS (2)
  - ATRIOVENTRICULAR BLOCK [None]
  - MUSCULAR WEAKNESS [None]
